FAERS Safety Report 17924931 (Version 1)
Quarter: 2020Q2

REPORT INFORMATION
  Report Type: Spontaneous
  Country: CN (occurrence: CN)
  Receive Date: 20200622
  Receipt Date: 20200622
  Transmission Date: 20200714
  Serious: Yes (Hospitalization, Other)
  Sender: FDA-Public Use
  Company Number: CN-PFIZER INC-2020238190

PATIENT
  Age: 62 Year
  Sex: Female
  Weight: 53.6 kg

DRUGS (2)
  1. BO BEI [Suspect]
     Active Substance: CARBOPLATIN
     Indication: OVARIAN NEOPLASM
     Dosage: 400 MG, 1X/DAY
     Route: 041
     Dates: start: 20200519, end: 20200519
  2. ANZATAX [PACLITAXEL] [Suspect]
     Active Substance: PACLITAXEL
     Indication: OVARIAN NEOPLASM
     Dosage: 180 MG, 1X/DAY
     Route: 041
     Dates: start: 20200519, end: 20200519

REACTIONS (4)
  - Cytopenia [Unknown]
  - Platelet count decreased [Recovering/Resolving]
  - Neutrophil count decreased [Recovering/Resolving]
  - White blood cell count decreased [Recovering/Resolving]

NARRATIVE: CASE EVENT DATE: 20200601
